FAERS Safety Report 9146244 (Version 1)
Quarter: 2013Q1

REPORT INFORMATION
  Report Type: Spontaneous
  Country: US (occurrence: None)
  Receive Date: 20130206
  Receipt Date: 20130206
  Transmission Date: 20140127
  Serious: Yes (Death, Hospitalization)
  Sender: FDA-Public Use
  Company Number: AUR-APL-2013-01090

PATIENT
  Age: 41 Year
  Sex: Male

DRUGS (8)
  1. DIDANOSINE [Suspect]
     Indication: HIV INFECTION
  2. TENOFOVIR [Suspect]
     Indication: HIV INFECTION
  3. ATAZANAVIR [Suspect]
     Indication: HIV INFECTION
  4. RITONAVIR [Suspect]
     Indication: HIV INFECTION
  5. LAMIVUDINE [Suspect]
     Indication: HIV INFECTION
  6. ETRAVIRINE [Suspect]
     Indication: HIV INFECTION
  7. RALTEGRAVIR [Suspect]
     Indication: HIV INFECTION
  8. ENFUVIRTIDE [Suspect]
     Indication: HIV INFECTION

REACTIONS (14)
  - Fatigue [None]
  - Nausea [None]
  - Abdominal pain [None]
  - Pancreatitis [None]
  - Cholestasis [None]
  - Pneumococcal sepsis [None]
  - Intussusception [None]
  - Anastomotic haemorrhage [None]
  - Renal failure [None]
  - Splenomegaly [None]
  - Hepatomegaly [None]
  - Haemorrhagic ascites [None]
  - Vanishing bile duct syndrome [None]
  - Hodgkin^s disease [None]
